FAERS Safety Report 14331393 (Version 1)
Quarter: 2017Q4

REPORT INFORMATION
  Report Type: Spontaneous
  Country: SK (occurrence: SK)
  Receive Date: 20171228
  Receipt Date: 20171228
  Transmission Date: 20180321
  Serious: Yes (Death, Congenital Anomaly, Other)
  Sender: FDA-Public Use
  Company Number: SK-MERCK KGAA-2037863

PATIENT

DRUGS (1)
  1. NOVOTHYROX [Suspect]
     Active Substance: LEVOTHYROXINE SODIUM
     Indication: HYPERTHYROIDISM
     Route: 064

REACTIONS (5)
  - Foetal distress syndrome [None]
  - Premature baby [Recovered/Resolved]
  - Congenital cystic lung [None]
  - Neonatal hypotension [Fatal]
  - Foetal exposure during pregnancy [Recovered/Resolved]
